FAERS Safety Report 7917137-2 (Version None)
Quarter: 2011Q4

REPORT INFORMATION
  Report Type: 
  Country: None (occurrence: None)
  Receive Date: 20111116
  Receipt Date: 20111103
  Transmission Date: 20120403
  Serious: Yes (Other)
  Sender: FDA-Public Use
  Company Number: US-AMGEN-USASP2011056774

PATIENT
  Sex: Male
  Weight: 51.247 kg

DRUGS (3)
  1. DANAZOL [Concomitant]
     Indication: IDIOPATHIC THROMBOCYTOPENIC PURPURA
  2. NPLATE [Suspect]
     Indication: IDIOPATHIC THROMBOCYTOPENIC PURPURA
     Dosage: 75 MUG, UNK
     Dates: start: 20090603, end: 20111014
  3. NPLATE [Suspect]
     Indication: MYELODYSPLASTIC SYNDROME

REACTIONS (1)
  - MYELODYSPLASTIC SYNDROME [None]
